FAERS Safety Report 7729413-7 (Version None)
Quarter: 2011Q3

REPORT INFORMATION
  Report Type: 
  Country: None (occurrence: None)
  Receive Date: 20110906
  Receipt Date: 20110831
  Transmission Date: 20111222
  Serious: No
  Sender: FDA-Public Use
  Company Number: US-PFIZER INC-2011204055

PATIENT
  Sex: Male

DRUGS (12)
  1. ZOFRAN [Concomitant]
     Dosage: UNK
  2. COUMADIN [Suspect]
     Dosage: UNK
     Dates: end: 20110825
  3. LABETALOL [Concomitant]
  4. ARGATROBAN [Suspect]
     Indication: HEPARIN-INDUCED THROMBOCYTOPENIA
     Dosage: UNK
     Route: 042
     Dates: start: 20110801, end: 20110831
  5. LEVOTHYROXINE [Concomitant]
  6. LINEZOLID [Concomitant]
  7. DARBEPOETIN ALFA [Concomitant]
  8. PANTOPRAZOLE [Concomitant]
  9. SIMVASTATIN [Concomitant]
  10. LEVETIRACETAM [Concomitant]
  11. MIDODRINE [Concomitant]
  12. IMIPENEM AND CILASTATIN SODIUM [Concomitant]

REACTIONS (2)
  - ACTIVATED PARTIAL THROMBOPLASTIN TIME PROLONGED [None]
  - INTERNATIONAL NORMALISED RATIO INCREASED [None]
